FAERS Safety Report 5196880-5 (Version None)
Quarter: 2006Q4

REPORT INFORMATION
  Report Type: 
  Country: None (occurrence: None)
  Receive Date: 20061227
  Receipt Date: 20061219
  Transmission Date: 20070319
  Serious: Yes (Life-Threatening)
  Sender: FDA-Public Use
  Company Number: 232733

PATIENT
  Age: 70 Year
  Sex: Male

DRUGS (8)
  1. GRTPA (ALTEPLASE) PWDR + SOLVENT, INFUSION SOLN [Suspect]
     Indication: CEREBRAL INFARCTION
     Dosage: 24 MIU/M2, SINGLE, INTRAVENOUS
     Route: 042
     Dates: start: 20060711, end: 20060711
  2. RADICUT (EDARAVONE) [Suspect]
     Indication: CEREBRAL INFARCTION
     Dosage: 60 MG
     Dates: start: 20060711, end: 20060719
  3. CEFPIROME SULFATE (CEPIROME SULFATE) [Suspect]
     Indication: PNEUMONIA
     Dosage: 2 G
     Dates: start: 20060711, end: 20060715
  4. OMEPRAL (OMEPRAZOLE) [Suspect]
     Indication: PROPHYLAXIS
     Dates: start: 20060711, end: 20060717
  5. CATACLOT (OZAGREL) [Suspect]
     Indication: CEREBRAL INFARCTION
     Dosage: 160 MG
     Dates: start: 20060712, end: 20060719
  6. DEXTRAN 40 W GLUCOSE (DEXTRAN 40, DEXTROSE) [Concomitant]
  7. HEPARIN [Concomitant]
  8. ASPIRIN [Concomitant]

REACTIONS (4)
  - PLATELET COUNT DECREASED [None]
  - PNEUMONIA [None]
  - STEVENS-JOHNSON SYNDROME [None]
  - TOXIC EPIDERMAL NECROLYSIS [None]
